FAERS Safety Report 13117539 (Version 1)
Quarter: 2017Q1

REPORT INFORMATION
  Report Type: Spontaneous
  Country: CA (occurrence: CA)
  Receive Date: 20170116
  Receipt Date: 20170116
  Transmission Date: 20170428
  Serious: Yes (Life-Threatening)
  Sender: FDA-Public Use
  Company Number: CA-ASTRAZENECA-2017SE02695

PATIENT
  Age: 17 Year
  Sex: Male

DRUGS (3)
  1. CORTICOSTEROIDS NASAL [Concomitant]
     Route: 045
  2. CORTICOSTEROIDS [Concomitant]
     Active Substance: CORTICOSTEROID NOS
     Indication: ASTHMA
     Route: 055
  3. BUDESONIDE. [Suspect]
     Active Substance: BUDESONIDE
     Indication: EOSINOPHILIC OESOPHAGITIS
     Route: 048

REACTIONS (3)
  - Product use issue [Unknown]
  - Blood cortisol decreased [Unknown]
  - Off label use [Unknown]
